FAERS Safety Report 9837238 (Version 1)
Quarter: 2014Q1

REPORT INFORMATION
  Report Type: Spontaneous
  Country: FR (occurrence: GR)
  Receive Date: 20140123
  Receipt Date: 20140123
  Transmission Date: 20141002
  Serious: Yes (Hospitalization)
  Sender: FDA-Public Use
  Company Number: GR-PFIZER INC-2014015650

PATIENT
  Age: 52 Year
  Sex: Male

DRUGS (1)
  1. GEMCITABINE HYDROCHLORIDE [Suspect]
     Indication: ADENOCARCINOMA PANCREAS
     Dosage: 1000 MG/M2, CYCLIC ON DAYS 1, 8, 15 AND EVERY 28 D WITH A STEADY DECLINE OF CA 19.9 LEVELS

REACTIONS (1)
  - Polymyositis [Recovered/Resolved]
